FAERS Safety Report 26054936 (Version 1)
Quarter: 2025Q4

REPORT INFORMATION
  Report Type: Spontaneous
  Country: CN (occurrence: CN)
  Receive Date: 20251117
  Receipt Date: 20251117
  Transmission Date: 20260117
  Serious: Yes (Hospitalization, Disabling, Other)
  Sender: ELI LILLY AND COMPANY
  Company Number: CN-ELI_LILLY_AND_COMPANY-CN202511004708

PATIENT
  Age: 40 Year
  Sex: Male
  Weight: 62 kg

DRUGS (1)
  1. TALTZ [Suspect]
     Active Substance: IXEKIZUMAB
     Indication: Ankylosing spondylitis
     Dosage: 160 MG, OTHER (LOADING DOSE)
     Route: 058
     Dates: start: 20251027, end: 20251027

REACTIONS (11)
  - Diarrhoea [Recovering/Resolving]
  - Shock [Recovering/Resolving]
  - Pyrexia [Unknown]
  - Vomiting [Unknown]
  - Heart rate increased [Recovering/Resolving]
  - Blood pressure decreased [Unknown]
  - Helicobacter infection [Recovering/Resolving]
  - Blood potassium decreased [Recovering/Resolving]
  - Heart rate decreased [Recovering/Resolving]
  - Nausea [Unknown]
  - Inflammatory bowel disease [Unknown]

NARRATIVE: CASE EVENT DATE: 20251029
